FAERS Safety Report 16744162 (Version 1)
Quarter: 2019Q3

REPORT INFORMATION
  Report Type: Spontaneous
  Country: ES (occurrence: ES)
  Receive Date: 20190827
  Receipt Date: 20190827
  Transmission Date: 20191005
  Serious: Yes (Hospitalization, Other)
  Sender: FDA-Public Use
  Company Number: PHHY2019ES194100

PATIENT
  Age: 84 Year
  Sex: Male

DRUGS (3)
  1. INSULIN GLARGINE [Suspect]
     Active Substance: INSULIN GLARGINE
     Dosage: 24 IU, UNK
     Route: 058
  2. EUCREAS [Suspect]
     Active Substance: METFORMIN HYDROCHLORIDE\VILDAGLIPTIN
     Indication: TYPE 2 DIABETES MELLITUS
     Dosage: UNK
     Route: 048
  3. INSULIN GLARGINE [Suspect]
     Active Substance: INSULIN GLARGINE
     Indication: TYPE 2 DIABETES MELLITUS
     Dosage: 23 IU, QD
     Route: 058
     Dates: start: 20190405

REACTIONS (11)
  - Depression [Recovered/Resolved]
  - Hyperglycaemia [Unknown]
  - Renal disorder [Recovering/Resolving]
  - Hyperglycaemia [Recovered/Resolved]
  - Hyperglycaemia [Recovering/Resolving]
  - Blood glucose increased [Not Recovered/Not Resolved]
  - Depression [Recovering/Resolving]
  - Hyperglycaemia [Recovered/Resolved]
  - Hypoglycaemia [Recovered/Resolved]
  - Dehydration [Recovered/Resolved]
  - Diabetes mellitus inadequate control [Unknown]

NARRATIVE: CASE EVENT DATE: 20190724
